FAERS Safety Report 6899196-1 (Version None)
Quarter: 2010Q3

REPORT INFORMATION
  Report Type: 
  Country: None (occurrence: None)
  Receive Date: 20100802
  Receipt Date: 20080125
  Transmission Date: 20110219
  Serious: Yes (Hospitalization, Other)
  Sender: FDA-Public Use
  Company Number: US-PFIZER INC-2007107006

PATIENT
  Sex: Female
  Weight: 143.8 kg

DRUGS (10)
  1. LYRICA [Suspect]
     Indication: FIBROMYALGIA
     Dates: start: 20071003, end: 20071007
  2. LISINOPRIL [Concomitant]
  3. SEROQUEL [Concomitant]
  4. SYNTHROID [Concomitant]
  5. VITAMIN B-12 [Concomitant]
  6. METHOCARBAMOL [Concomitant]
  7. EFFEXOR [Concomitant]
  8. ALLEGRA [Concomitant]
  9. CALCIUM [Concomitant]
  10. TERAZOSIN HCL [Concomitant]

REACTIONS (4)
  - ANGIOEDEMA [None]
  - DRUG HYPERSENSITIVITY [None]
  - LIVER FUNCTION TEST ABNORMAL [None]
  - RENAL FUNCTION TEST ABNORMAL [None]
